FAERS Safety Report 5313363-X (Version None)
Quarter: 2007Q2

REPORT INFORMATION
  Report Type: 
  Country: None (occurrence: None)
  Receive Date: 20070501
  Receipt Date: 20070419
  Transmission Date: 20071010
  Serious: Yes (Hospitalization)
  Sender: FDA-Public Use
  Company Number: DE-NOVOPROD-261410

PATIENT
  Sex: Female
  Weight: 61.2 kg

DRUGS (3)
  1. LEVEMIR [Suspect]
     Indication: DIABETES MELLITUS INSULIN-DEPENDENT
     Dosage: 14 U, QD
     Route: 058
     Dates: start: 20070306, end: 20070306
  2. INSUMAN BASAL                      /00646002/ [Concomitant]
     Indication: DIABETES MELLITUS INSULIN-DEPENDENT
     Dosage: 14 U, QD
     Route: 058
     Dates: start: 20070302, end: 20070306
  3. APIDRA [Concomitant]
     Indication: DIABETES MELLITUS INSULIN-DEPENDENT
     Dosage: UNK, PRN
     Route: 058
     Dates: start: 20070302

REACTIONS (6)
  - ASTHENIA [None]
  - HYPERSENSITIVITY [None]
  - INJECTION SITE ERYTHEMA [None]
  - NAUSEA [None]
  - RESTLESSNESS [None]
  - TREMOR [None]
